FAERS Safety Report 21685708 (Version 2)
Quarter: 2023Q2

REPORT INFORMATION
  Report Type: Report from Study
  Country: US (occurrence: US)
  Receive Date: 20221206
  Receipt Date: 20230503
  Transmission Date: 20230721
  Serious: Yes (Hospitalization)
  Sender: FDA-Public Use
  Company Number: US-ABBVIE-4181131

PATIENT
  Age: 69 Year
  Sex: Female

DRUGS (1)
  1. HUMIRA [Suspect]
     Active Substance: ADALIMUMAB
     Indication: Rheumatoid arthritis
     Dosage: CITRATE FREE
     Route: 058
     Dates: start: 20000701

REACTIONS (4)
  - Cardiac disorder [Not Recovered/Not Resolved]
  - Atrial fibrillation [Recovering/Resolving]
  - Weight fluctuation [Unknown]
  - Pulse abnormal [Recovering/Resolving]

NARRATIVE: CASE EVENT DATE: 20221201
